FAERS Safety Report 16631312 (Version 1)
Quarter: 2019Q3

REPORT INFORMATION
  Report Type: Spontaneous
  Country: GB (occurrence: GB)
  Receive Date: 20190725
  Receipt Date: 20190725
  Transmission Date: 20191004
  Serious: Yes (Hospitalization)
  Sender: FDA-Public Use
  Company Number: GB-SHIRE-GB201921562

PATIENT

DRUGS (2)
  1. REVESTIVE [Suspect]
     Active Substance: TEDUGLUTIDE
     Indication: PRODUCT USED FOR UNKNOWN INDICATION
     Dosage: 1.2 MILLIGRAM, 1X/DAY:QD
     Route: 065
     Dates: start: 20180926
  2. TPN [AMINO ACIDS NOS;CARBOHYDRATES NOS;MINERALS NOS;VITAMINS NOS] [Concomitant]
     Indication: PRODUCT USED FOR UNKNOWN INDICATION
     Dosage: UNK UNK, 1X/DAY:QD

REACTIONS (2)
  - Therapeutic response decreased [Unknown]
  - Weight fluctuation [Unknown]
